FAERS Safety Report 10245232 (Version 1)
Quarter: 2014Q2

REPORT INFORMATION
  Report Type: Spontaneous
  Country: CA (occurrence: CA)
  Receive Date: 20140618
  Receipt Date: 20140618
  Transmission Date: 20141212
  Serious: Yes (Other)
  Sender: FDA-Public Use
  Company Number: PHHY2014CA072424

PATIENT
  Age: 37 Year
  Sex: Female

DRUGS (3)
  1. CICLOSPORIN [Suspect]
     Indication: IMMUNOSUPPRESSION
     Dosage: 400MG, DAILY
  2. CICLOSPORIN [Suspect]
     Dosage: 350 MG, DAILY
  3. PREDNISONE [Suspect]
     Indication: IMMUNOSUPPRESSION

REACTIONS (3)
  - Pre-eclampsia [Unknown]
  - Immunosuppressant drug level decreased [Unknown]
  - Maternal exposure during pregnancy [Unknown]
